FAERS Safety Report 7372779-0 (Version None)
Quarter: 2011Q1

REPORT INFORMATION
  Report Type: 
  Country: None (occurrence: None)
  Receive Date: 20110324
  Receipt Date: 20110315
  Transmission Date: 20110831
  Serious: Yes (Other)
  Sender: FDA-Public Use
  Company Number: US-ASTRAZENECA-2011SE03168

PATIENT
  Sex: Female

DRUGS (8)
  1. PULMICORT FLEXHALER [Suspect]
     Route: 055
  2. SYMBICORT [Suspect]
     Route: 055
  3. NEXIUM [Suspect]
     Route: 048
  4. RHINOCORT [Suspect]
     Route: 045
  5. ADVAIR DISKUS 100/50 [Concomitant]
  6. PEPCID [Concomitant]
  7. CODEINE [Concomitant]
  8. MORPHINE [Concomitant]

REACTIONS (10)
  - SURGERY [None]
  - WRONG DRUG ADMINISTERED [None]
  - DYSPNOEA [None]
  - INSOMNIA [None]
  - PULMONARY EMBOLISM [None]
  - MALAISE [None]
  - CHRONIC OBSTRUCTIVE PULMONARY DISEASE [None]
  - WEIGHT DECREASED [None]
  - OEDEMA PERIPHERAL [None]
  - PERIPHERAL EMBOLISM [None]
